FAERS Safety Report 5734385-0 (Version None)
Quarter: 2008Q2

REPORT INFORMATION
  Report Type: 
  Country: None (occurrence: None)
  Receive Date: 20080508
  Receipt Date: 20080508
  Transmission Date: 20081010
  Serious: No
  Sender: FDA-Public Use
  Company Number: None

PATIENT
  Sex: Female
  Weight: 122.4712 kg

DRUGS (3)
  1. CREST PRO HEALTH RINSE 1.5L PROCTOR AND GAMBLE [Suspect]
     Indication: DYSGEUSIA
     Dosage: 2X DAILY PO
     Route: 048
  2. CREST PRO HEALTH RINSE 1.5L PROCTOR AND GAMBLE [Suspect]
     Indication: GLOSSODYNIA
     Dosage: 2X DAILY PO
     Route: 048
  3. CREST PRO HEALTH RINSE 1.5L PROCTOR AND GAMBLE [Suspect]
     Indication: TOOTH DISCOLOURATION
     Dosage: 2X DAILY PO
     Route: 048

REACTIONS (3)
  - DYSGEUSIA [None]
  - GLOSSODYNIA [None]
  - TOOTH DISCOLOURATION [None]
